FAERS Safety Report 7956658-3 (Version None)
Quarter: 2011Q4

REPORT INFORMATION
  Report Type: 
  Country: None (occurrence: None)
  Receive Date: 20111130
  Receipt Date: 20111116
  Transmission Date: 20120403
  Serious: Yes (Other)
  Sender: FDA-Public Use
  Company Number: GB-DEXPHARM-20111764

PATIENT
  Age: 40 Year
  Sex: Male

DRUGS (7)
  1. BIPIVACAINE [Suspect]
     Indication: PERIPHERAL NERVE INJECTION
     Dosage: 62.5 MG MILLIGRAM(S)
     Dates: start: 20111102, end: 20111102
  2. FLOXACILLIN SODIUM [Suspect]
     Dosage: 1 G GRAM(S)
     Dates: start: 20111102, end: 20111102
  3. REMIFENTANIL [Suspect]
     Indication: ANAESTHESIA
     Dosage: 100 ?G MICROGRAM(S)
     Dates: start: 20111102, end: 20111102
  4. CHLORHEXIDINE (0.5%) [Suspect]
     Dates: start: 20111102, end: 20111102
  5. PROPOFOL [Suspect]
     Indication: ANAESTHESIA
     Dosage: 300 ?G MICROGRAM(S)
     Dates: start: 20111102, end: 20111102
  6. MIDAZOLAM [Suspect]
     Indication: SEDATION
     Dosage: 2 MG MILLIGRAM(S)
     Dates: start: 20111102, end: 20111102
  7. GENTAMICIN [Suspect]
     Indication: ANTIBIOTIC PROPHYLAXIS
     Dosage: 200 MG MILLIGRAM(S)
     Dates: start: 20111102, end: 20111102

REACTIONS (1)
  - ANAPHYLACTIC REACTION [None]
